FAERS Safety Report 5210619-6 (Version None)
Quarter: 2006Q4

REPORT INFORMATION
  Report Type: 
  Country: None (occurrence: None)
  Receive Date: 20061106
  Receipt Date: 20060912
  Transmission Date: 20070319
  Serious: No
  Sender: FDA-Public Use
  Company Number: VNL_0211_2006

PATIENT
  Age: 80 Year
  Sex: Female

DRUGS (2)
  1. APOKYN [Suspect]
     Indication: PARKINSON'S DISEASE
     Dosage: 0.3 MG PRN SC
     Route: 058
     Dates: start: 20060814, end: 20060905
  2. MANY OTHER DRUGS (NOT SPECIFIED) [Concomitant]

REACTIONS (1)
  - ABASIA [None]
